FAERS Safety Report 18297332 (Version 1)
Quarter: 2020Q3

REPORT INFORMATION
  Report Type: Spontaneous
  Country: US (occurrence: US)
  Receive Date: 20200923
  Receipt Date: 20200923
  Transmission Date: 20201103
  Serious: No
  Sender: FDA-Public Use
  Company Number: US-JNJFOC-20200923021

PATIENT
  Sex: Female

DRUGS (2)
  1. WOMENS ROGAINE UNSCENTED [Suspect]
     Active Substance: MINOXIDIL
     Indication: ALOPECIA
     Dosage: DOSE: HALF A CAPFUL, 5 ML?PRODUCT LAST ADMINISTERED ON 06?SEP?2020 (4 DAYS AGO)
     Route: 061
     Dates: start: 2016
  2. WOMENS ROGAINE UNSCENTED [Suspect]
     Active Substance: MINOXIDIL
     Dosage: DOSE: HALF A CAPFUL, 5 ML?PRODUCT LAST ADMINISTERED ON 06?SEP?2020 (4 DAYS AGO)
     Route: 061
     Dates: start: 2016

REACTIONS (3)
  - Inappropriate schedule of product administration [Unknown]
  - Overdose [Unknown]
  - Hypertrichosis [Not Recovered/Not Resolved]
